FAERS Safety Report 11427500 (Version 1)
Quarter: 2015Q3

REPORT INFORMATION
  Report Type: Spontaneous
  Country: US (occurrence: US)
  Receive Date: 20150827
  Receipt Date: 20150827
  Transmission Date: 20151125
  Serious: No
  Sender: FDA-Public Use
  Company Number: US-SA-2015SA033120

PATIENT
  Age: 47 Year
  Sex: Male
  Weight: 72.7 kg

DRUGS (13)
  1. PROTONIX [Concomitant]
     Active Substance: PANTOPRAZOLE SODIUM
  2. STOOL SOFTENER [Concomitant]
     Active Substance: DOCUSATE CALCIUM
  3. VICODIN [Concomitant]
     Active Substance: ACETAMINOPHEN\HYDROCODONE BITARTRATE
  4. ASPIRIN. [Concomitant]
     Active Substance: ASPIRIN
  5. PERCOCET [Concomitant]
     Active Substance: ACETAMINOPHEN\OXYCODONE HYDROCHLORIDE
  6. PROMETHAZINE [Concomitant]
     Active Substance: PROMETHAZINE\PROMETHAZINE HYDROCHLORIDE
  7. FABRAZYME [Suspect]
     Active Substance: AGALSIDASE BETA
     Route: 042
  8. IRON [Concomitant]
     Active Substance: IRON
  9. LOPRESSOR [Concomitant]
     Active Substance: METOPROLOL TARTRATE
  10. FLORASTOR [Concomitant]
     Active Substance: SACCHAROMYCES CEREVISIAE
  11. DIFLUCAN [Concomitant]
     Active Substance: FLUCONAZOLE
  12. VANCOMYCIN [Concomitant]
     Active Substance: VANCOMYCIN
  13. MEROPENEM. [Concomitant]
     Active Substance: MEROPENEM

REACTIONS (1)
  - Drug dose omission [Unknown]
